FAERS Safety Report 12927940 (Version 2)
Quarter: 2016Q4

REPORT INFORMATION
  Report Type: Report from Study
  Country: KR (occurrence: KR)
  Receive Date: 20161110
  Receipt Date: 20161128
  Transmission Date: 20170207
  Serious: Yes (Hospitalization, Other)
  Sender: FDA-Public Use
  Company Number: PHHY2013KR101412

PATIENT
  Age: 59 Year
  Sex: Female
  Weight: 37 kg

DRUGS (10)
  1. COMBICIN [Concomitant]
     Indication: CHRONIC OBSTRUCTIVE PULMONARY DISEASE
     Dosage: 4.5 G, QID
     Route: 065
     Dates: start: 20130705, end: 20130708
  2. MEIACT [Concomitant]
     Active Substance: CEFDITOREN PIVOXIL
     Indication: CHRONIC OBSTRUCTIVE PULMONARY DISEASE
     Dosage: 100 MG, TID
     Route: 065
     Dates: start: 20130709, end: 20130724
  3. ATROVENT [Concomitant]
     Active Substance: IPRATROPIUM BROMIDE
     Indication: CHRONIC OBSTRUCTIVE PULMONARY DISEASE
     Dosage: 1 ML, QID
     Route: 065
     Dates: start: 20130704, end: 20130704
  4. DISOLIN [Concomitant]
     Active Substance: METHYLPREDNISOLONE SODIUM SUCCINATE
     Indication: CHRONIC OBSTRUCTIVE PULMONARY DISEASE
     Dosage: 20 MG, QD
     Route: 065
     Dates: start: 20130705, end: 20130708
  5. AMBROXOL [Concomitant]
     Active Substance: AMBROXOL
     Indication: CHRONIC OBSTRUCTIVE PULMONARY DISEASE
     Dosage: 15 MG, TID
     Route: 065
     Dates: start: 20130705, end: 20130713
  6. DECOIN [Concomitant]
     Indication: CHRONIC OBSTRUCTIVE PULMONARY DISEASE
     Dosage: 20 MG, TID
     Route: 065
     Dates: start: 20130708, end: 20130715
  7. METHYLON [Concomitant]
     Active Substance: METHYLPREDNISOLONE
     Indication: CHRONIC OBSTRUCTIVE PULMONARY DISEASE
     Dosage: 20 MG, QD
     Route: 065
     Dates: start: 20130709, end: 20130724
  8. ONBREZ BREEZHALER [Suspect]
     Active Substance: INDACATEROL
     Indication: CHRONIC OBSTRUCTIVE PULMONARY DISEASE
     Dosage: 150 UG, UNK
     Route: 055
     Dates: start: 20130424
  9. VENTOLIN [Concomitant]
     Active Substance: ALBUTEROL SULFATE
     Indication: CHRONIC OBSTRUCTIVE PULMONARY DISEASE
     Dosage: 500 UG, QID
     Route: 055
     Dates: start: 20130704, end: 20130704
  10. PRIVITUSS [Concomitant]
     Indication: CHRONIC OBSTRUCTIVE PULMONARY DISEASE
     Dosage: 8 ML, TID
     Route: 065
     Dates: start: 20130707, end: 20130724

REACTIONS (7)
  - PO2 decreased [Recovered/Resolved]
  - Oxygen saturation decreased [Unknown]
  - Pyrexia [Recovering/Resolving]
  - C-reactive protein increased [Unknown]
  - Dyspnoea [Recovering/Resolving]
  - Blood potassium decreased [Unknown]
  - Blood glucose increased [Unknown]

NARRATIVE: CASE EVENT DATE: 20130702
